FAERS Safety Report 20409603 (Version 3)
Quarter: 2022Q2

REPORT INFORMATION
  Report Type: Other
  Country: FR (occurrence: FR)
  Receive Date: 20220201
  Receipt Date: 20220404
  Transmission Date: 20220721
  Serious: Yes (Death, Other)
  Sender: FDA-Public Use
  Company Number: FR-ASTELLAS-2022US000617

PATIENT
  Age: 69 Year
  Sex: Female

DRUGS (10)
  1. REGADENOSON [Suspect]
     Active Substance: REGADENOSON
     Indication: Scan myocardial perfusion
     Dosage: 1 DOSE UNIQUE (DETAILS NOT PROVIDED), SINGLE
     Route: 042
     Dates: start: 20211216, end: 20211216
  2. REGADENOSON [Suspect]
     Active Substance: REGADENOSON
     Indication: Scan myocardial perfusion
     Dosage: 1 DOSE UNIQUE (DETAILS NOT PROVIDED), SINGLE
     Route: 042
     Dates: start: 20211216, end: 20211216
  3. REGADENOSON [Suspect]
     Active Substance: REGADENOSON
     Indication: Scan myocardial perfusion
     Dosage: 1 DOSE UNIQUE (DETAILS NOT PROVIDED), SINGLE
     Route: 042
     Dates: start: 20211216, end: 20211216
  4. REGADENOSON [Suspect]
     Active Substance: REGADENOSON
     Indication: Scan myocardial perfusion
     Dosage: 1 DOSE UNIQUE (DETAILS NOT PROVIDED), SINGLE
     Route: 042
     Dates: start: 20211216, end: 20211216
  5. SOTALOL HYDROCHLORIDE [Suspect]
     Active Substance: SOTALOL HYDROCHLORIDE
     Indication: Product used for unknown indication
     Dosage: UNK UNK, UNKNOWN FREQ.
     Route: 065
  6. ALDACTONE [Suspect]
     Active Substance: SPIRONOLACTONE
     Indication: Product used for unknown indication
     Dosage: UNK UNK, UNKNOWN FREQ.
     Route: 065
  7. FUROSEMIDE [Suspect]
     Active Substance: FUROSEMIDE
     Indication: Product used for unknown indication
     Dosage: UNK UNK, UNKNOWN FREQ.
     Route: 065
  8. COMIRNATY [Suspect]
     Active Substance: TOZINAMERAN
     Indication: COVID-19 immunisation
     Dosage: UNK UNK, UNKNOWN FREQ. (R1)
     Route: 030
     Dates: start: 20211215, end: 20211215
  9. AUGMENTIN [Concomitant]
     Active Substance: AMOXICILLIN\CLAVULANATE POTASSIUM
     Indication: Product used for unknown indication
     Dosage: UNK UNK, UNKNOWN FREQ.
     Route: 065
  10. WARFARIN SODIUM [Concomitant]
     Active Substance: WARFARIN SODIUM
     Indication: Product used for unknown indication
     Dosage: UNK UNK, UNKNOWN FREQ.
     Route: 065

REACTIONS (8)
  - Electrocardiogram QT prolonged [Fatal]
  - Arrhythmia [Fatal]
  - Cardio-respiratory arrest [Fatal]
  - Coma [Fatal]
  - Ischaemia [Fatal]
  - Hyperkalaemia [Fatal]
  - Atrial fibrillation [Fatal]
  - Bradycardia [Fatal]

NARRATIVE: CASE EVENT DATE: 20211216
